FAERS Safety Report 9205912 (Version 1)
Quarter: 2013Q1

REPORT INFORMATION
  Report Type: Spontaneous
  Country: US (occurrence: None)
  Receive Date: 20120709
  Receipt Date: 20120709
  Transmission Date: 20140127
  Serious: Yes (Other)
  Sender: FDA-Public Use
  Company Number: PHEH2011US011628

PATIENT
  Age: 80 Year
  Sex: Female

DRUGS (6)
  1. GLEEVEC (IMATINIB) UNKNOWN [Suspect]
     Indication: CHRONIC MYELOID LEUKAEMIA
     Dosage: (400 MG HALF TABLET)
     Route: 048
     Dates: start: 20110418
  2. EVISTA (RALOXIFENE HYDROCHLORIDE) [Concomitant]
  3. PAXIL (PAROXETINE HYDROCHLORIDE) [Concomitant]
  4. CELEBREX (CELECOXIB) [Concomitant]
  5. OMEPRAZOLE (OMEPRAZOLE) [Concomitant]
  6. FIORINAL (ACETYL SALICYLCI ACID, BUTALBITAL, CAFFEINE) [Suspect]

REACTIONS (4)
  - Chronic myeloid leukaemia [None]
  - Fatigue [None]
  - Wrong technique in drug usage process [None]
  - Neoplasm malignant [None]
